FAERS Safety Report 6163454 (Version 5)
Quarter: 2014Q4

REPORT INFORMATION
  Report Type: Spontaneous
  Country: US (occurrence: US)
  Receive Date: 20061108
  Receipt Date: 20141007
  Transmission Date: 20150529
  Serious: Yes (Hospitalization, Other)
  Sender: FDA-Public Use
  Company Number: US-AMGEN-STX198354

PATIENT
  Age: 51 Year
  Sex: Female

DRUGS (3)
  1. ENBREL [Suspect]
     Active Substance: ETANERCEPT
     Indication: RHEUMATOID ARTHRITIS
     Dosage: 25 MG, QWK
     Route: 058
     Dates: start: 20010718
  2. METHOTREXATE [Concomitant]
     Active Substance: METHOTREXATE
     Dosage: 10 MG, QWK
     Route: 048
     Dates: start: 200504
  3. ENBREL [Suspect]
     Active Substance: ETANERCEPT
     Indication: PSORIASIS
     Dosage: UNK
     Route: 065

REACTIONS (24)
  - Liver function test abnormal [Not Recovered/Not Resolved]
  - Psoriasis [Not Recovered/Not Resolved]
  - Joint surgery [Recovered/Resolved]
  - Myocardial infarction [Recovered/Resolved]
  - Injection site pain [Recovered/Resolved]
  - Spinal disorder [Recovered/Resolved]
  - Weight decreased [Recovered/Resolved]
  - Peripheral swelling [Recovered/Resolved]
  - Joint instability [Recovered/Resolved]
  - Sepsis [Recovered/Resolved]
  - Cardiac failure congestive [Not Recovered/Not Resolved]
  - Cystitis [Not Recovered/Not Resolved]
  - Injection site bruising [Recovered/Resolved]
  - Urinary tract infection [Recovered/Resolved]
  - Arthritis bacterial [Recovered/Resolved]
  - Musculoskeletal stiffness [Not Recovered/Not Resolved]
  - Injection site reaction [Recovered/Resolved]
  - Arthropathy [Recovered/Resolved]
  - Medical device removal [Recovered/Resolved]
  - Staphylococcal infection [Recovered/Resolved]
  - Injection site erythema [Recovered/Resolved]
  - Joint swelling [Recovered/Resolved]
  - Staphylococcal sepsis [Recovered/Resolved]
  - Influenza [Recovered/Resolved]

NARRATIVE: CASE EVENT DATE: 2004
